FAERS Safety Report 15772764 (Version 1)
Quarter: 2018Q4

REPORT INFORMATION
  Report Type: Report from Study
  Country: RU (occurrence: RU)
  Receive Date: 20181228
  Receipt Date: 20181228
  Transmission Date: 20190205
  Serious: Yes (Life-Threatening, Hospitalization, Other)
  Sender: FDA-Public Use
  Company Number: RU-SA-2016SA061914

PATIENT
  Age: 70 Year
  Sex: Male
  Weight: 109 kg

DRUGS (3)
  1. VANDETANIB. [Suspect]
     Active Substance: VANDETANIB
     Indication: THYROID CANCER
     Dosage: 100 MG,QD
     Route: 048
     Dates: start: 20140425, end: 20180222
  2. LEVOTHYROXINE SODIUM. [Concomitant]
     Active Substance: LEVOTHYROXINE SODIUM
     Indication: THYROID CANCER
  3. LEVOTHYROXINE SODIUM. [Concomitant]
     Active Substance: LEVOTHYROXINE SODIUM
     Indication: HYPOTHYROIDISM
     Dosage: 250 MG,QD
     Route: 048
     Dates: start: 2007

REACTIONS (5)
  - Ischaemic stroke [Recovered/Resolved with Sequelae]
  - Atrioventricular block [Recovered/Resolved]
  - Atrial flutter [Not Recovered/Not Resolved]
  - Acute myocardial infarction [Recovered/Resolved with Sequelae]
  - Thrombocytopenia [Recovered/Resolved]

NARRATIVE: CASE EVENT DATE: 20140430
